FAERS Safety Report 11748464 (Version 1)
Quarter: 2015Q4

REPORT INFORMATION
  Report Type: Spontaneous
  Country: US (occurrence: US)
  Receive Date: 20151117
  Receipt Date: 20151117
  Transmission Date: 20160304
  Serious: No
  Sender: FDA-Public Use
  Company Number: GXBR2015US002156

PATIENT
  Age: 56 Year
  Sex: Female
  Weight: 68.27 kg

DRUGS (1)
  1. NITRO-BID [Suspect]
     Active Substance: NITROGLYCERIN
     Indication: THROMBOSIS PROPHYLAXIS
     Dosage: UNK DF, TID
     Route: 061
     Dates: start: 20150801

REACTIONS (1)
  - Off label use [Not Recovered/Not Resolved]

NARRATIVE: CASE EVENT DATE: 20150801
